FAERS Safety Report 20625694 (Version 1)
Quarter: 2022Q1

REPORT INFORMATION
  Report Type: Spontaneous
  Country: US (occurrence: None)
  Receive Date: 20220323
  Receipt Date: 20220323
  Transmission Date: 20220423
  Serious: No
  Sender: FDA-Public Use
  Company Number: US-ROCHE-2904898

PATIENT
  Age: 74 Year
  Sex: Female

DRUGS (1)
  1. ERIVEDGE [Suspect]
     Active Substance: VISMODEGIB
     Indication: Basal cell carcinoma
     Route: 048
     Dates: start: 202105, end: 20210913

REACTIONS (7)
  - Nausea [Unknown]
  - Retching [Unknown]
  - Alopecia [Unknown]
  - Dysphagia [Unknown]
  - Pain [Unknown]
  - Dehydration [Unknown]
  - Arthralgia [Unknown]

NARRATIVE: CASE EVENT DATE: 20210913
